FAERS Safety Report 16261736 (Version 1)
Quarter: 2019Q2

REPORT INFORMATION
  Report Type: Spontaneous
  Country: EG (occurrence: EG)
  Receive Date: 20190501
  Receipt Date: 20190501
  Transmission Date: 20190711
  Serious: Yes (Other)
  Sender: FDA-Public Use
  Company Number: EG-PFIZER INC-2019187557

PATIENT
  Age: 32 Year
  Sex: Female
  Weight: 70 kg

DRUGS (6)
  1. TRIATEC (RAMIPRIL) [Suspect]
     Active Substance: RAMIPRIL
     Indication: LEFT VENTRICULAR FAILURE
     Dosage: 2.5 MG, ONCE DAILY
     Route: 048
  2. LANOXIN [Concomitant]
     Active Substance: DIGOXIN
     Indication: LEFT VENTRICULAR FAILURE
     Dosage: 0.25 MG, ONCE DAILY
     Route: 048
  3. ATACAND [Concomitant]
     Active Substance: CANDESARTAN CILEXETIL
     Indication: HYPERTENSION
     Dosage: 8 MG, ONCE DAILY
     Route: 065
  4. PROCORALAN [Concomitant]
     Active Substance: IVABRADINE
     Indication: TACHYCARDIA
     Dosage: 7.5 MG, ONCE DAILY
     Route: 048
  5. EXAMIDE [Concomitant]
     Indication: DIURETIC THERAPY
     Dosage: 5 MG, ONCE DAILY
     Route: 065
  6. AGGREX [Concomitant]
     Indication: LEFT VENTRICULAR FAILURE
     Dosage: 75 MG, ONCE DAILY
     Route: 065

REACTIONS (3)
  - Bradycardia [Recovered/Resolved]
  - Blood pressure fluctuation [Recovered/Resolved]
  - Syncope [Recovered/Resolved]
